FAERS Safety Report 10474451 (Version 2)
Quarter: 2014Q3

REPORT INFORMATION
  Report Type: Report from Study
  Country: US (occurrence: US)
  Receive Date: 20140924
  Receipt Date: 20140924
  Transmission Date: 20150326
  Serious: Yes (Hospitalization)
  Sender: FDA-Public Use
  Company Number: US-ACTELION-A-NJ2014-99001

PATIENT
  Age: 26 Year
  Sex: Male

DRUGS (7)
  1. VELETRI [Suspect]
     Active Substance: EPOPROSTENOL
     Dosage: 20 UNK, UNK
     Route: 042
     Dates: start: 20140321
  2. ADCIRCA [Concomitant]
     Active Substance: TADALAFIL
  3. VELETRI [Suspect]
     Active Substance: EPOPROSTENOL
     Dosage: 25 NG/KG, PER MIN
     Route: 042
     Dates: start: 20140321
  4. VELETRI [Suspect]
     Active Substance: EPOPROSTENOL
     Indication: PULMONARY ARTERIAL HYPERTENSION
     Dosage: 21 NG/KG, PER MIN
     Route: 042
     Dates: start: 20140321
  5. VELETRI [Suspect]
     Active Substance: EPOPROSTENOL
     Dosage: 16 UNK, UNK
     Route: 042
     Dates: start: 20140328
  6. VELETRI [Suspect]
     Active Substance: EPOPROSTENOL
     Dosage: 14 UNK, UNK
     Route: 042
     Dates: start: 20140328
  7. LETAIRIS [Concomitant]
     Active Substance: AMBRISENTAN

REACTIONS (9)
  - Catheter site erythema [Recovering/Resolving]
  - Syncope [Unknown]
  - Diarrhoea [Recovering/Resolving]
  - Rash pustular [Unknown]
  - Catheter site pain [Unknown]
  - Headache [Recovering/Resolving]
  - Chills [Unknown]
  - Hot flush [Recovering/Resolving]
  - Pain in jaw [Unknown]
